FAERS Safety Report 4267143-7 (Version None)
Quarter: 2004Q1

REPORT INFORMATION
  Report Type: 
  Country: None (occurrence: None)
  Receive Date: 20040107
  Receipt Date: 20031223
  Transmission Date: 20041129
  Serious: Yes (Hospitalization)
  Sender: FDA-Public Use
  Company Number: US-SHR-03-015653

PATIENT
  Age: 50 Year
  Sex: Male

DRUGS (6)
  1. LEUKINE [Suspect]
     Indication: STEM CELL TRANSPLANT
     Dosage: 5 UG/KG/DAY (DAY 3 TO APHERESIS), SUBCUTANEOUS
     Route: 058
  2. TAXOL [Suspect]
     Indication: STEM CELL TRANSPLANT
     Dosage: 250 MG/M2 X 1 DOSE (DAY 2), INTRAVENOUS
     Route: 042
  3. CYCLOPHOSPHAMIDE [Concomitant]
     Indication: STEM CELL TRANSPLANT
     Dosage: 4 GM/M2 X 1 DOSE (DAY 1), INTRAVENOUS
     Route: 042
  4. MESNA [Suspect]
     Indication: STEM CELL TRANSPLANT
     Dosage: 4 GM/M2 (3 DIVIDED DOSES, DAY 1)
  5. G-CSF (GRANULOCYTE COLONY STIMULATING FACTOR) [Suspect]
     Indication: STEM CELL TRANSPLANT
     Dosage: 10 UG/KG/DAY (DAY 10 TO APHERESIS), SUBCUTANEOUS
     Route: 058
  6. INTERLEUKIN-2 (INTERLEUKIN-2) [Suspect]
     Indication: STEM CELL TRANSPLANT

REACTIONS (6)
  - DELAYED ENGRAFTMENT [None]
  - FEBRILE NEUTROPENIA [None]
  - HERPES SIMPLEX [None]
  - LUNG INFILTRATION [None]
  - PNEUMONIA ASPIRATION [None]
  - SINUSITIS [None]
